FAERS Safety Report 5974937-6 (Version None)
Quarter: 2008Q4

REPORT INFORMATION
  Report Type: 
  Country: None (occurrence: None)
  Receive Date: 20081202
  Receipt Date: 20081121
  Transmission Date: 20090506
  Serious: Yes (Death)
  Sender: FDA-Public Use
  Company Number: FI-RANBAXY-2008RR-19551

PATIENT
  Sex: Male

DRUGS (2)
  1. CIPROFLOXACIN RANBAXY 500 MG TABLETIT [Suspect]
     Dosage: 500 MG, BID
     Dates: start: 20080121, end: 20080130
  2. KLINDAGOL [Suspect]
     Dosage: 600 MG, TID
     Dates: start: 20080121, end: 20080130

REACTIONS (1)
  - PSEUDOMEMBRANOUS COLITIS [None]
